FAERS Safety Report 18255763 (Version 1)
Quarter: 2020Q3

REPORT INFORMATION
  Report Type: Other
  Country: US (occurrence: US)
  Receive Date: 20200910
  Receipt Date: 20200910
  Transmission Date: 20201103
  Serious: No
  Sender: FDA-Public Use
  Company Number: US-LEADIANT BIOSCIENCES INC-2019STPI000379

PATIENT

DRUGS (8)
  1. ZOFRAN [Concomitant]
     Active Substance: ONDANSETRON HYDROCHLORIDE
  2. KLONOPIN [Concomitant]
     Active Substance: CLONAZEPAM
  3. VIMPAT [Concomitant]
     Active Substance: LACOSAMIDE
  4. PRILOSEC [Concomitant]
     Active Substance: OMEPRAZOLE MAGNESIUM
  5. MATULANE [Suspect]
     Active Substance: PROCARBAZINE HYDROCHLORIDE
     Indication: BRAIN NEOPLASM MALIGNANT
     Dosage: 150 MILLIGRAM 3 CAPS DAILY ON DAYS 8?21
     Route: 048
     Dates: start: 20190614
  6. DEXAMETHASONE. [Concomitant]
     Active Substance: DEXAMETHASONE
  7. KEPPRA [Concomitant]
     Active Substance: LEVETIRACETAM
  8. ATIVAN [Concomitant]
     Active Substance: LORAZEPAM

REACTIONS (1)
  - White blood cell count decreased [Not Recovered/Not Resolved]
